FAERS Safety Report 7611047-6 (Version None)
Quarter: 2011Q3

REPORT INFORMATION
  Report Type: 
  Country: None (occurrence: None)
  Receive Date: 20110707
  Receipt Date: 20110621
  Transmission Date: 20111222
  Serious: Yes (Hospitalization, Disabling)
  Sender: FDA-Public Use
  Company Number: LTI2011A00175

PATIENT
  Age: 66 Year
  Sex: Male

DRUGS (6)
  1. ACTOS [Suspect]
     Indication: TYPE 2 DIABETES MELLITUS
     Dosage: 30 MG (30 MG,1 IN 1 D) ORAL
     Route: 048
     Dates: start: 20030101, end: 20110525
  2. DIAMICRON (GLICLAZIDE) [Concomitant]
  3. METFORMIN HCL [Concomitant]
  4. ASPIRIN [Concomitant]
  5. PERINDOPRIL ERBUMINE [Concomitant]
  6. FLUVASTATIN [Concomitant]

REACTIONS (2)
  - URINARY BLADDER POLYP [None]
  - BLADDER TRANSITIONAL CELL CARCINOMA [None]
